FAERS Safety Report 12561609 (Version 1)
Quarter: 2016Q3

REPORT INFORMATION
  Report Type: Spontaneous
  Country: US (occurrence: US)
  Receive Date: 20160715
  Receipt Date: 20160715
  Transmission Date: 20161109
  Serious: No
  Sender: FDA-Public Use
  Company Number: US-IGSA-GTI003321

PATIENT
  Age: 47 Year
  Sex: Male
  Weight: 66 kg

DRUGS (18)
  1. ASPIRIN. [Concomitant]
     Active Substance: ASPIRIN
     Route: 048
  2. BACLOFEN. [Concomitant]
     Active Substance: BACLOFEN
  3. CLOPIDOGREL [Concomitant]
     Active Substance: CLOPIDOGREL BISULFATE
  4. ESCITALOPRAM [Concomitant]
     Active Substance: ESCITALOPRAM OXALATE
  5. ATORVASTATIN [Concomitant]
     Active Substance: ATORVASTATIN
  6. GAMUNEX-C [Suspect]
     Active Substance: HUMAN IMMUNOGLOBULIN G
     Indication: SERUM SICKNESS
     Route: 042
     Dates: start: 20150623, end: 20150623
  7. CYCLOBENZAPRINE [Concomitant]
     Active Substance: CYCLOBENZAPRINE
     Route: 048
  8. FOLIC ACID. [Concomitant]
     Active Substance: FOLIC ACID
  9. GAMUNEX-C [Suspect]
     Active Substance: HUMAN IMMUNOGLOBULIN G
     Indication: SERUM SICKNESS
     Route: 042
     Dates: start: 20150619, end: 20150619
  10. FAMOTIDINE. [Concomitant]
     Active Substance: FAMOTIDINE
     Route: 048
  11. DOCUSATE [Concomitant]
     Active Substance: DOCUSATE
  12. HYDRALAZINE [Concomitant]
     Active Substance: HYDRALAZINE HYDROCHLORIDE
  13. SENNOSIDE /00571901/ [Concomitant]
     Active Substance: SENNOSIDES A AND B
  14. GAMUNEX-C [Suspect]
     Active Substance: HUMAN IMMUNOGLOBULIN G
     Indication: SERUM SICKNESS
     Route: 042
     Dates: start: 20150620, end: 20150620
  15. PRIVIGEN [Suspect]
     Active Substance: HUMAN IMMUNOGLOBULIN G
     Indication: SERUM SICKNESS
     Route: 042
     Dates: start: 20150621, end: 20150621
  16. CARVEDILOL. [Concomitant]
     Active Substance: CARVEDILOL
  17. GAMUNEX-C [Suspect]
     Active Substance: HUMAN IMMUNOGLOBULIN G
     Indication: SERUM SICKNESS
     Route: 042
     Dates: start: 20150622, end: 20150622
  18. LOSARTAN. [Concomitant]
     Active Substance: LOSARTAN

REACTIONS (1)
  - White blood cell count decreased [Recovering/Resolving]

NARRATIVE: CASE EVENT DATE: 20150623
